FAERS Safety Report 20499425 (Version 1)
Quarter: 2022Q1

REPORT INFORMATION
  Report Type: Spontaneous
  Country: GB (occurrence: GB)
  Receive Date: 20220222
  Receipt Date: 20220222
  Transmission Date: 20220423
  Serious: Yes (Disabling)
  Sender: FDA-Public Use
  Company Number: GB-MHRA-EYC 00266625

PATIENT
  Age: 53 Year
  Sex: Female
  Weight: 53.06 kg

DRUGS (1)
  1. ESCITALOPRAM [Suspect]
     Active Substance: ESCITALOPRAM OXALATE
     Indication: Ill-defined disorder
     Dosage: 10MG
     Route: 048
     Dates: start: 20201202, end: 20210130

REACTIONS (10)
  - Dizziness [Not Recovered/Not Resolved]
  - Fear [Unknown]
  - Anxiety [Unknown]
  - Anhedonia [Unknown]
  - Paraesthesia [Unknown]
  - Muscle tightness [Unknown]
  - Decreased appetite [Unknown]
  - Irritability [Unknown]
  - Adverse drug reaction [Not Recovered/Not Resolved]
  - Medication error [Unknown]

NARRATIVE: CASE EVENT DATE: 20210202
